FAERS Safety Report 4486853-X (Version None)
Quarter: 2004Q4

REPORT INFORMATION
  Report Type: 
  Country: None (occurrence: None)
  Receive Date: 20041022
  Receipt Date: 20041007
  Transmission Date: 20050328
  Serious: Yes (Hospitalization)
  Sender: FDA-Public Use
  Company Number: 200412621GDS

PATIENT
  Age: 40 Year
  Sex: Male

DRUGS (6)
  1. ASPIRIN [Suspect]
     Dosage: 100 MG, QD, ORAL
     Route: 048
     Dates: start: 20040803, end: 20040822
  2. PLAVIX [Suspect]
     Dosage: 75 MG, QD, ORAL
     Route: 048
     Dates: start: 20040803, end: 20040823
  3. CONGESCOR (BISOPROLOL) [Concomitant]
  4. TORVAST [Concomitant]
  5. NEXIUM [Concomitant]
  6. ESAPENT [Concomitant]

REACTIONS (3)
  - ANGIONEUROTIC OEDEMA [None]
  - ARTHRALGIA [None]
  - PYREXIA [None]
